FAERS Safety Report 18339273 (Version 1)
Quarter: 2020Q4

REPORT INFORMATION
  Report Type: Spontaneous
  Country: US (occurrence: US)
  Receive Date: 20201002
  Receipt Date: 20201002
  Transmission Date: 20210113
  Serious: No
  Sender: FDA-Public Use
  Company Number: US-PFIZER INC-2020379705

PATIENT
  Age: 63 Year
  Sex: Female

DRUGS (2)
  1. BRAFTOVI [Suspect]
     Active Substance: ENCORAFENIB
     Indication: LUNG NEOPLASM MALIGNANT
     Dosage: 450 MG, DAILY
     Dates: start: 20191026
  2. MEKTOVI [Suspect]
     Active Substance: BINIMETINIB
     Indication: LUNG NEOPLASM MALIGNANT
     Dosage: 45 MG, 2X/DAY
     Dates: start: 20191026

REACTIONS (3)
  - Malaise [Unknown]
  - Product use in unapproved indication [Unknown]
  - Off label use [Unknown]

NARRATIVE: CASE EVENT DATE: 20191026
